FAERS Safety Report 9553395 (Version 1)
Quarter: 2013Q3

REPORT INFORMATION
  Report Type: Spontaneous
  Country: GB (occurrence: GB)
  Receive Date: 20130925
  Receipt Date: 20130925
  Transmission Date: 20140515
  Serious: Yes (Other)
  Sender: FDA-Public Use
  Company Number: GB-EISAI INC-E7389-04210-SPO-GB

PATIENT
  Age: 50 Year
  Sex: Female
  Weight: 78 kg

DRUGS (1)
  1. HALAVEN [Suspect]
     Indication: BREAST CANCER METASTATIC
     Route: 041
     Dates: start: 20130216, end: 20130828

REACTIONS (5)
  - Cardiothoracic ratio increased [Unknown]
  - Ejection fraction decreased [Unknown]
  - Left ventricular dysfunction [Not Recovered/Not Resolved]
  - Orthopnoea [Unknown]
  - Oedema peripheral [Unknown]
